FAERS Safety Report 8767368 (Version 2)
Quarter: 2012Q4

REPORT INFORMATION
  Report Type: 
  Country: BR (occurrence: BR)
  Receive Date: 20120904
  Receipt Date: 20121004
  Transmission Date: 20130627
  Serious: Yes (Other)
  Sender: FDA-Public Use
  Company Number: BR-AMGEN-BRASP2012005645

PATIENT
  Age: 26 Year
  Sex: Female
  Weight: 61 kg

DRUGS (7)
  1. ENBREL [Suspect]
     Indication: ANKYLOSING SPONDYLITIS
     Dosage: 50 mg, weekly
     Route: 058
     Dates: start: 20100803, end: 201206
  2. OMEPRAZOLE [Concomitant]
     Dosage: 20 mg, 1x/day
  3. NIMESULIDE [Concomitant]
     Dosage: UNK
  4. PARACETAMOL [Concomitant]
     Dosage: 50 mg, 3x/day 8 / 8 hours
  5. SIMVASTATIN [Concomitant]
     Dosage: 20 mg, 1x/day
  6. DONAREN [Concomitant]
     Dosage: strength 50 mg
  7. ADALIMUMAB [Concomitant]
     Dosage: strength 40 mg

REACTIONS (4)
  - Ankylosing spondylitis [Unknown]
  - Dyslipidaemia [Not Recovered/Not Resolved]
  - Wrong technique in drug usage process [Unknown]
  - Injection site pain [Unknown]
